FAERS Safety Report 9509042 (Version 1)
Quarter: 2013Q1

REPORT INFORMATION
  Report Type: Spontaneous
  Country: US (occurrence: None)
  Receive Date: 20130305
  Receipt Date: 20130305
  Transmission Date: 20140127
  Serious: Yes (Hospitalization)
  Sender: FDA-Public Use
  Company Number: 163-21880-12022948

PATIENT
  Age: 82 Year
  Sex: Female

DRUGS (10)
  1. REVLIMID (LENALIDOMIDE) (25 MILLIGRAM, CAPSULES) [Suspect]
     Indication: PLASMA CELL MYELOMA
     Dosage: 1 IN 1 D
     Route: 048
     Dates: start: 20120202
  2. BACTRIM DS (BACTRIM) [Concomitant]
  3. CYCLOBENZAPRINE HCI (CYCLOBENZAPRINE HYDROCHLORIDE) [Concomitant]
  4. DEXAMETHASONE (DEXAMETHASONE) [Concomitant]
  5. GLUCOSAMINE (GLUCOSAMINE) [Concomitant]
  6. CHONDROITIN (CHONDROITIN) [Concomitant]
  7. LEVOFLOXACIN IN D5W (LEVOFLOXACIN) [Concomitant]
  8. PROTONIX [Concomitant]
  9. SPIRONOLACTONE/ HCTZ (ALDACTAZIDE A) [Concomitant]
  10. VITAMIN B12 (CYANOCOBALAMIN) [Concomitant]

REACTIONS (2)
  - Urticaria [None]
  - Rash [None]
